FAERS Safety Report 5247114-4 (Version None)
Quarter: 2007Q1

REPORT INFORMATION
  Report Type: 
  Country: None (occurrence: None)
  Receive Date: 20070221
  Receipt Date: 20070208
  Transmission Date: 20070707
  Serious: Yes (Hospitalization, Other)
  Sender: FDA-Public Use
  Company Number: 2005BI018675

PATIENT
  Age: 48 Year
  Sex: Male
  Weight: 89.3586 kg

DRUGS (4)
  1. AVONEX [Suspect]
     Indication: MULTIPLE SCLEROSIS
     Dosage: 30 UG; QW; IM
     Route: 030
     Dates: start: 19960101, end: 20030801
  2. AVONEX [Suspect]
     Indication: MULTIPLE SCLEROSIS
     Dosage: 30 UG; QW; IM
     Route: 030
     Dates: start: 20030801, end: 20050801
  3. AVONEX [Suspect]
     Indication: MULTIPLE SCLEROSIS
     Dosage: 30 UG; QW; IM
     Route: 030
     Dates: start: 20051004
  4. PREDNISONE [Concomitant]

REACTIONS (12)
  - CHEST PAIN [None]
  - CONDITION AGGRAVATED [None]
  - CONTUSION [None]
  - FALL [None]
  - FEELING ABNORMAL [None]
  - GAIT DISTURBANCE [None]
  - MULTIPLE SCLEROSIS [None]
  - MUSCLE STRAIN [None]
  - PERFORATED ULCER [None]
  - POSTOPERATIVE THROMBOSIS [None]
  - PROCEDURAL PAIN [None]
  - ULCER [None]
